FAERS Safety Report 12349465 (Version 2)
Quarter: 2016Q2

REPORT INFORMATION
  Report Type: Spontaneous
  Country: US (occurrence: US)
  Receive Date: 20160510
  Receipt Date: 20160616
  Transmission Date: 20160815
  Serious: No
  Sender: FDA-Public Use
  Company Number: US-009507513-1604USA012604

PATIENT
  Sex: Female

DRUGS (1)
  1. DULERA [Suspect]
     Active Substance: FORMOTEROL FUMARATE DIHYDRATE\MOMETASONE FUROATE
     Dosage: STRENGTH-200/5MICROGRAM
     Route: 055

REACTIONS (4)
  - Malaise [Unknown]
  - Drug dose omission [Unknown]
  - Product quality issue [Unknown]
  - Stress [Unknown]
